FAERS Safety Report 23417722 (Version 8)
Quarter: 2024Q1

REPORT INFORMATION
  Report Type: Spontaneous
  Country: ES (occurrence: ES)
  Receive Date: 20240118
  Receipt Date: 20240320
  Transmission Date: 20240410
  Serious: Yes (Life-Threatening)
  Sender: FDA-Public Use
  Company Number: None

PATIENT
  Age: 35 Year
  Sex: Male
  Weight: 62 kg

DRUGS (4)
  1. RILPIVIRINE [Suspect]
     Active Substance: RILPIVIRINE
     Indication: HIV infection
     Dosage: 900 MG, Q2M (900.0 MG EVERY 2 MONTHS)
     Route: 030
     Dates: start: 20231115
  2. RILPIVIRINE [Suspect]
     Active Substance: RILPIVIRINE
     Dosage: 1 DF, Q8W (1 EVERY 8 WEEKS)
     Route: 030
     Dates: start: 20231018, end: 20240110
  3. VOCABRIA [Suspect]
     Active Substance: CABOTEGRAVIR SODIUM
     Indication: HIV infection
     Dosage: 600MG, Q2M (900.0 MG EVERY 2 MONTHS)
     Route: 030
     Dates: start: 20231115
  4. VOCABRIA [Suspect]
     Active Substance: CABOTEGRAVIR SODIUM
     Indication: HIV infection
     Dosage: 1 DF, Q8W (1 EVERY 8 WEEKS)
     Route: 030
     Dates: start: 20231018, end: 20240110

REACTIONS (1)
  - Anaphylactic shock [Recovered/Resolved]

NARRATIVE: CASE EVENT DATE: 20240110
